FAERS Safety Report 6376191-2 (Version None)
Quarter: 2009Q3

REPORT INFORMATION
  Report Type: 
  Country: None (occurrence: None)
  Receive Date: 20090918
  Receipt Date: 20090908
  Transmission Date: 20100115
  Serious: Yes (Disabling)
  Sender: FDA-Public Use
  Company Number: OSCN-NO-0909S-0422

PATIENT
  Age: 64 Year
  Sex: Male

DRUGS (19)
  1. OMNISCAN [Suspect]
     Indication: DRUG USE FOR UNKNOWN INDICATION
     Dosage: 10 ML; I.V.
     Route: 042
     Dates: start: 20010607, end: 20010607
  2. GADOBUTROL (GADOVIST) [Suspect]
     Indication: DRUG USE FOR UNKNOWN INDICATION
     Dosage: 15 ML
     Dates: start: 20080221, end: 20080221
  3. ERYTHROPOIETIN (NEORECORMON) [Concomitant]
  4. CALCIUM ACETATE (PHOS-EX) [Concomitant]
  5. SACCHARATED IRON [Concomitant]
  6. SACHHARATED IRON OXIDE (VENOFER) [Concomitant]
  7. CETIRIZINE (ALNOK) [Concomitant]
  8. INSUIN (INSULATARD) [Concomitant]
  9. PARACETAMOL (PINEX) [Concomitant]
  10. PLAVIX [Concomitant]
  11. CITALOPRAM (AKARIN) [Concomitant]
  12. FUROSEMIDE [Concomitant]
  13. PANTOPRAZOLE SODIUM [Concomitant]
  14. SIMVASTATIN [Concomitant]
  15. ZOPICLONE (IMOCLONE) [Concomitant]
  16. GLYCERYL TRINITRATE [Concomitant]
  17. ISOSORBIDE MONONIRATE (ISODUR) [Concomitant]
  18. ACETYLSALICYLIC ACID (MAGNYL) [Concomitant]
  19. MIRTAZAPINE [Concomitant]

REACTIONS (1)
  - NEPHROGENIC SYSTEMIC FIBROSIS [None]
